FAERS Safety Report 8241656 (Version 7)
Quarter: 2013Q1

REPORT INFORMATION
  Report Type: Spontaneous
  Country: CA (occurrence: CA)
  Receive Date: 20111111
  Receipt Date: 20130218
  Transmission Date: 20140127
  Serious: Yes (Hospitalization)
  Sender: FDA-Public Use
  Company Number: CA-ROCHE-1009324

PATIENT
  Age: 39 Year
  Sex: Female

DRUGS (6)
  1. XOLAIR [Suspect]
     Indication: ASTHMA
     Route: 058
     Dates: start: 20110414
  2. XOLAIR [Suspect]
     Indication: RHINITIS
     Route: 058
     Dates: start: 20110609
  3. VENTOLIN [Concomitant]
  4. SYMBICORT [Concomitant]
  5. SINGULAIR [Concomitant]
  6. NEXIUM [Concomitant]

REACTIONS (8)
  - Sinusitis [Unknown]
  - Lower respiratory tract infection [Unknown]
  - Chest pain [Unknown]
  - Therapeutic response decreased [Unknown]
  - Chest discomfort [Not Recovered/Not Resolved]
  - Dyspnoea [Unknown]
  - Wheezing [Not Recovered/Not Resolved]
  - Pulmonary function test abnormal [Unknown]
